FAERS Safety Report 25259988 (Version 1)
Quarter: 2025Q2

REPORT INFORMATION
  Report Type: Spontaneous
  Country: US (occurrence: None)
  Receive Date: 20250501
  Receipt Date: 20250501
  Transmission Date: 20250717
  Serious: Yes (Other)
  Sender: FDA-CTU
  Company Number: None

PATIENT
  Age: 39 Year
  Sex: Female
  Weight: 101.25 kg

DRUGS (8)
  1. QELBREE [Suspect]
     Active Substance: VILOXAZINE HYDROCHLORIDE
     Indication: Attention deficit hyperactivity disorder
     Dates: start: 20250430
  2. LISINOPRIL [Concomitant]
     Active Substance: LISINOPRIL
  3. CRESTOR [Concomitant]
     Active Substance: ROSUVASTATIN CALCIUM
  4. QELBREE [Concomitant]
     Active Substance: VILOXAZINE HYDROCHLORIDE
  5. B12 injection [Concomitant]
  6. NORCO [Concomitant]
     Active Substance: ACETAMINOPHEN\HYDROCODONE BITARTRATE
  7. MAGNESIUM GLYCINATE [Concomitant]
     Active Substance: MAGNESIUM GLYCINATE
  8. VITAMIN D [Concomitant]
     Active Substance: VITAMIN D NOS

REACTIONS (2)
  - Feeling hot [None]
  - Hyperhidrosis [None]

NARRATIVE: CASE EVENT DATE: 20250430
